FAERS Safety Report 12109635 (Version 1)
Quarter: 2016Q1

REPORT INFORMATION
  Report Type: Spontaneous
  Country: BE (occurrence: BE)
  Receive Date: 20160224
  Receipt Date: 20160224
  Transmission Date: 20160526
  Serious: Yes (Hospitalization, Disabling, Other)
  Sender: FDA-Public Use
  Company Number: BE-GLAXOSMITHKLINE-B0156345A

PATIENT
  Age: 56 Year
  Sex: Male
  Weight: 79 kg

DRUGS (9)
  1. AUGMENTIN [Suspect]
     Active Substance: AMOXICILLIN\CLAVULANATE POTASSIUM
     Indication: NO ADVERSE EVENT
     Dosage: 1500 MG
     Route: 048
     Dates: start: 19920110, end: 19920124
  2. LOSEC [Concomitant]
     Active Substance: OMEPRAZOLE
     Indication: NO ADVERSE EVENT
     Dates: start: 19920110, end: 19920205
  3. AUGMENTIN [Suspect]
     Active Substance: AMOXICILLIN\CLAVULANATE POTASSIUM
     Indication: NO ADVERSE EVENT
  4. ASPIRIN. [Concomitant]
     Active Substance: ASPIRIN
     Route: 048
     Dates: start: 19920117, end: 19920119
  5. PARACETAMOL [Concomitant]
     Active Substance: ACETAMINOPHEN
     Route: 048
     Dates: start: 19920117, end: 19920119
  6. AUGMENTIN [Suspect]
     Active Substance: AMOXICILLIN\CLAVULANATE POTASSIUM
     Indication: HELICOBACTER INFECTION
  7. AUGMENTIN [Suspect]
     Active Substance: AMOXICILLIN\CLAVULANATE POTASSIUM
     Indication: GASTROOESOPHAGEAL REFLUX DISEASE
  8. AUGMENTIN [Suspect]
     Active Substance: AMOXICILLIN\CLAVULANATE POTASSIUM
     Indication: GASTROOESOPHAGEAL REFLUX DISEASE
  9. LOSEC [Concomitant]
     Active Substance: OMEPRAZOLE
     Indication: GASTROOESOPHAGEAL REFLUX DISEASE

REACTIONS (10)
  - Pyrexia [Recovered/Resolved]
  - Asthenia [Recovered/Resolved]
  - Myalgia [Recovered/Resolved]
  - Jaundice [Recovered/Resolved]
  - Weight decreased [Unknown]
  - Blood bilirubin increased [Unknown]
  - Decreased appetite [Unknown]
  - Lacrimal gland enlargement [Recovered/Resolved]
  - Dry mouth [Recovered/Resolved]
  - Hepatitis cholestatic [Unknown]

NARRATIVE: CASE EVENT DATE: 19920117
